FAERS Safety Report 5915238-1 (Version None)
Quarter: 2008Q4

REPORT INFORMATION
  Report Type: 
  Country: None (occurrence: None)
  Receive Date: 20081010
  Receipt Date: 20081005
  Transmission Date: 20090506
  Serious: Yes (Other)
  Sender: FDA-Public Use
  Company Number: US-JNJFOC-20081000351

PATIENT
  Sex: Female
  Weight: 97.52 kg

DRUGS (7)
  1. INVEGA [Suspect]
     Indication: BIPOLAR DISORDER
     Route: 048
  2. INVEGA [Suspect]
     Indication: SCHIZOPHRENIA
     Route: 048
  3. HALDOL [Interacting]
     Route: 048
  4. HALDOL [Interacting]
     Route: 048
  5. HALDOL [Interacting]
     Indication: BIPOLAR DISORDER
     Route: 048
  6. DEPAKOTE [Concomitant]
     Indication: DRUG USE FOR UNKNOWN INDICATION
  7. OTHER THERAPEUTIC MEDICATIONS [Concomitant]

REACTIONS (26)
  - ABDOMINAL PAIN [None]
  - ANOREXIA [None]
  - ANXIETY [None]
  - BLOOD GLUCOSE DECREASED [None]
  - CRYING [None]
  - DIABETES MELLITUS INADEQUATE CONTROL [None]
  - DISORIENTATION [None]
  - DIZZINESS [None]
  - DRUG INTERACTION [None]
  - DRY MOUTH [None]
  - EYE SWELLING [None]
  - HEADACHE [None]
  - HYPERPROLACTINAEMIA [None]
  - HYPERSENSITIVITY [None]
  - HYPERTENSION [None]
  - MANIA [None]
  - MENORRHAGIA [None]
  - MUSCULAR WEAKNESS [None]
  - NAUSEA [None]
  - PANIC DISORDER [None]
  - PITUITARY TUMOUR [None]
  - RETCHING [None]
  - SOMNOLENCE [None]
  - TACHYCARDIA [None]
  - VISION BLURRED [None]
  - VOMITING [None]
